FAERS Safety Report 23251125 (Version 1)
Quarter: 2023Q4

REPORT INFORMATION
  Report Type: Spontaneous
  Country: US (occurrence: None)
  Receive Date: 20231201
  Receipt Date: 20231201
  Transmission Date: 20240110
  Serious: No
  Sender: FDA-Public Use
  Company Number: 2023A268588

PATIENT
  Age: 74 Year
  Sex: Male

DRUGS (5)
  1. SEROQUEL [Suspect]
     Active Substance: QUETIAPINE FUMARATE
     Route: 048
  2. NUPLAZID [Suspect]
     Active Substance: PIMAVANSERIN TARTRATE
     Indication: Parkinson^s disease
     Route: 048
     Dates: start: 202201
  3. SCOPOLAMINE [Suspect]
     Active Substance: SCOPOLAMINE
     Route: 062
  4. ASPIRIN [Concomitant]
     Active Substance: ASPIRIN
  5. TYLENOL [Concomitant]
     Active Substance: ACETAMINOPHEN

REACTIONS (9)
  - Dizziness [Unknown]
  - Speech disorder [Unknown]
  - Delirium [Unknown]
  - Salivary hypersecretion [Unknown]
  - Balance disorder [Unknown]
  - Condition aggravated [Unknown]
  - Somnolence [Unknown]
  - Hallucination [Unknown]
  - Drug ineffective [Unknown]
